FAERS Safety Report 19770149 (Version 1)
Quarter: 2021Q3

REPORT INFORMATION
  Report Type: Spontaneous
  Country: AU (occurrence: AU)
  Receive Date: 20210831
  Receipt Date: 20210831
  Transmission Date: 20211014
  Serious: Yes (Life-Threatening, Other)
  Sender: FDA-Public Use
  Company Number: AU-SUN PHARMACEUTICAL INDUSTRIES LTD-2021RR-309565

PATIENT
  Age: 5 Decade
  Sex: Male

DRUGS (2)
  1. CIPROFLOXACIN. [Suspect]
     Active Substance: CIPROFLOXACIN
     Indication: PROSTATITIS
     Dosage: UNK
     Route: 065
  2. METHYLPREDNISOLONE. [Suspect]
     Active Substance: METHYLPREDNISOLONE
     Indication: EOSINOPHILIC MYOCARDITIS
     Dosage: PULSED 250 MG
     Route: 042

REACTIONS (4)
  - Therapeutic product effect incomplete [Unknown]
  - Drug reaction with eosinophilia and systemic symptoms [Unknown]
  - Thyroiditis [Unknown]
  - Eosinophilic myocarditis [Unknown]
